FAERS Safety Report 13917601 (Version 1)
Quarter: 2017Q3

REPORT INFORMATION
  Report Type: Report from Study
  Country: MX (occurrence: MX)
  Receive Date: 20170829
  Receipt Date: 20170829
  Transmission Date: 20171127
  Serious: Yes (Other)
  Sender: FDA-Public Use
  Company Number: PHHY2017MX126379

PATIENT
  Sex: Male

DRUGS (2)
  1. MIFLONIDE [Suspect]
     Active Substance: BUDESONIDE
     Indication: BRONCHIAL DISORDER
     Dosage: 2 DF (200 UG), QD (6 OR 7 YEARS)
     Route: 055
     Dates: end: 20170822
  2. FORADIL [Suspect]
     Active Substance: FORMOTEROL FUMARATE
     Indication: PRODUCT USED FOR UNKNOWN INDICATION
     Dosage: 12 UG, UNK
     Route: 065

REACTIONS (3)
  - Agitation [Unknown]
  - Product use in unapproved indication [Recovered/Resolved]
  - Respiratory failure [Unknown]
